FAERS Safety Report 5071647-7 (Version None)
Quarter: 2006Q3

REPORT INFORMATION
  Report Type: 
  Country: None (occurrence: None)
  Receive Date: 20060803
  Receipt Date: 20060803
  Transmission Date: 20061208
  Serious: Yes (Other)
  Sender: FDA-Public Use
  Company Number: None

PATIENT
  Age: 42 Year
  Sex: Male
  Weight: 95.2554 kg

DRUGS (1)
  1. ADIPEX-P [Suspect]
     Indication: WEIGHT DECREASED
     Dosage: 37.5 MG PO Q AM
     Route: 048
     Dates: start: 20060701

REACTIONS (1)
  - PROSTATIC DISORDER [None]
